FAERS Safety Report 7776626-4 (Version None)
Quarter: 2011Q3

REPORT INFORMATION
  Report Type: 
  Country: None (occurrence: None)
  Receive Date: 20110922
  Receipt Date: 20110922
  Transmission Date: 20111222
  Serious: Yes (Hospitalization)
  Sender: FDA-Public Use
  Company Number: None

PATIENT
  Sex: Male
  Weight: 85 kg

DRUGS (2)
  1. TAXOL [Suspect]
     Dosage: 378 MG
     Dates: end: 20110909
  2. CARBOPLATIN [Suspect]
     Dosage: 750 MG
     Dates: end: 20110909

REACTIONS (8)
  - VOMITING [None]
  - PYREXIA [None]
  - THROMBOCYTOPENIA [None]
  - UPPER RESPIRATORY TRACT INFECTION [None]
  - NAUSEA [None]
  - LEUKOPENIA [None]
  - FATIGUE [None]
  - FEBRILE NEUTROPENIA [None]
